FAERS Safety Report 25448923 (Version 1)
Quarter: 2025Q2

REPORT INFORMATION
  Report Type: Spontaneous
  Country: US (occurrence: US)
  Receive Date: 20250618
  Receipt Date: 20250618
  Transmission Date: 20250716
  Serious: Yes (Life-Threatening)
  Sender: SPECGX
  Company Number: US-SPECGX-T202501090

PATIENT
  Sex: Male

DRUGS (2)
  1. BUPRENORPHINE\NALOXONE [Suspect]
     Active Substance: BUPRENORPHINE\NALOXONE
     Indication: Product used for unknown indication
     Route: 060
  2. BUPRENORPHINE\NALOXONE [Suspect]
     Active Substance: BUPRENORPHINE\NALOXONE
     Route: 060

REACTIONS (7)
  - Brief resolved unexplained event [Unknown]
  - Skin infection [Unknown]
  - Scar [Unknown]
  - Injury [Unknown]
  - Suspected counterfeit product [Unknown]
  - Suspected product contamination [Unknown]
  - Product complaint [Unknown]
